FAERS Safety Report 9277074 (Version 2)
Quarter: 2013Q2

REPORT INFORMATION
  Report Type: Spontaneous
  Country: US (occurrence: US)
  Receive Date: 20130507
  Receipt Date: 20130604
  Transmission Date: 20140414
  Serious: No
  Sender: FDA-Public Use
  Company Number: US-009507513-1304USA016229

PATIENT
  Sex: Female

DRUGS (3)
  1. VICTRELIS [Suspect]
     Indication: CHRONIC HEPATITIS C
     Dosage: 1 DF, QD (1 IN 1 D)
     Route: 048
     Dates: start: 20130419
  2. PEGASYS [Suspect]
     Indication: CHRONIC HEPATITIS C
     Dosage: 180 MICROGRAM, QW(1 IN 1 WK)
     Route: 058
     Dates: start: 20130322
  3. RIBAPAK [Suspect]
     Indication: CHRONIC HEPATITIS C
     Dosage: 1200 MG, IN DIVIDED DOSES
     Route: 048
     Dates: start: 20130322

REACTIONS (3)
  - Blood pressure increased [Unknown]
  - Dysgeusia [Unknown]
  - Fatigue [Unknown]
